FAERS Safety Report 25856310 (Version 1)
Quarter: 2025Q3

REPORT INFORMATION
  Report Type: Spontaneous
  Country: CN (occurrence: CN)
  Receive Date: 20250928
  Receipt Date: 20250928
  Transmission Date: 20251021
  Serious: Yes (Hospitalization, Other)
  Sender: ABBVIE
  Company Number: CN-ABBVIE-6476168

PATIENT
  Age: 49 Year
  Sex: Male
  Weight: 68 kg

DRUGS (5)
  1. VENETOCLAX [Suspect]
     Active Substance: VENETOCLAX
     Indication: Drug therapy
     Dosage: 400 MILLIGRAM
     Route: 048
     Dates: start: 20250901, end: 20250904
  2. SODIUM CHLORIDE [Concomitant]
     Active Substance: SODIUM CHLORIDE
     Indication: Vehicle solution use
     Dosage: 500 ML?ROA- INTRAVENOUS DRIP
     Dates: start: 20250829, end: 20250903
  3. SODIUM CHLORIDE [Concomitant]
     Active Substance: SODIUM CHLORIDE
     Indication: Vehicle solution use
     Dosage: 2 ML?ROA- SUBCUTANEOUS
     Route: 058
     Dates: start: 20250829, end: 20250903
  4. OMACETAXINE MEPESUCCINATE [Suspect]
     Active Substance: OMACETAXINE MEPESUCCINATE
     Indication: Drug therapy
     Dosage: 1 MILLIGRAM?ROA-INTRAVENOUS DRIP
     Dates: start: 20250829, end: 20250903
  5. CYTARABINE [Suspect]
     Active Substance: CYTARABINE
     Indication: Drug therapy
     Route: 058
     Dates: start: 20250829, end: 20250903

REACTIONS (7)
  - Myelosuppression [Unknown]
  - Anaemia [Unknown]
  - Pyrexia [Unknown]
  - Granulocytopenia [Unknown]
  - Platelet count decreased [Unknown]
  - Fatigue [Unknown]
  - Pallor [Unknown]

NARRATIVE: CASE EVENT DATE: 20250909
